FAERS Safety Report 6366532-4 (Version None)
Quarter: 2009Q3

REPORT INFORMATION
  Report Type: 
  Country: None (occurrence: None)
  Receive Date: 20090921
  Receipt Date: 20090910
  Transmission Date: 20100115
  Serious: Yes (Hospitalization)
  Sender: FDA-Public Use
  Company Number: NZ-BRISTOL-MYERS SQUIBB COMPANY-14766679

PATIENT
  Sex: Female

DRUGS (1)
  1. MITOMYCIN [Suspect]

REACTIONS (1)
  - IMPAIRED HEALING [None]
